FAERS Safety Report 16843855 (Version 2)
Quarter: 2019Q4

REPORT INFORMATION
  Report Type: Spontaneous
  Country: US (occurrence: US)
  Receive Date: 20190924
  Receipt Date: 20191017
  Transmission Date: 20200122
  Serious: Yes (Hospitalization)
  Sender: FDA-Public Use
  Company Number: US-SIGMAPHARM LABORATORIES, LLC-2019SIG00105

PATIENT
  Age: 50 Year
  Sex: Female
  Weight: 145.13 kg

DRUGS (9)
  1. FLUOCINONIDE. [Concomitant]
     Active Substance: FLUOCINONIDE
     Dosage: 1 DOSAGE UNITS, 2X/DAY
     Route: 061
  2. TRIAMCINOLONE [Concomitant]
     Active Substance: TRIAMCINOLONE
     Dosage: 1 DOSAGE UNITS, 2X/DAY
     Route: 061
  3. VITAMIN C [Concomitant]
     Active Substance: ASCORBIC ACID
  4. VITAMIN D3 (CHOLECALCIFEROL) [Concomitant]
     Dosage: 10000 IU, 1X/DAY
     Route: 048
     Dates: end: 201908
  5. PEPCID [Concomitant]
     Active Substance: FAMOTIDINE
     Dosage: 20 MG, 1X/DAY IN THE EVENINGQ
  6. IRON (FERROUS GLUCONATE) [Concomitant]
     Active Substance: IRON
     Dosage: 324 MG, 1X/DAY
     Route: 048
  7. LISINOPRIL. [Concomitant]
     Active Substance: LISINOPRIL
     Dosage: UNK
     Dates: end: 201908
  8. CELECOXIB. [Concomitant]
     Active Substance: CELECOXIB
     Dosage: 100 MG, 1X/DAY
     Route: 048
     Dates: end: 201908
  9. ACITRETIN. [Suspect]
     Active Substance: ACITRETIN
     Indication: PSORIASIS
     Dosage: 25 MG, 1X/DAY
     Route: 048
     Dates: start: 201904, end: 20190816

REACTIONS (6)
  - Cauda equina syndrome [Recovering/Resolving]
  - Hypertension [Unknown]
  - Lumbar spinal stenosis [Recovering/Resolving]
  - Vertebral foraminal stenosis [Recovering/Resolving]
  - Memory impairment [Unknown]
  - Postoperative wound complication [Recovering/Resolving]

NARRATIVE: CASE EVENT DATE: 2019
